FAERS Safety Report 6462879-1 (Version None)
Quarter: 2009Q4

REPORT INFORMATION
  Report Type: 
  Country: None (occurrence: None)
  Receive Date: 20091130
  Receipt Date: 20091124
  Transmission Date: 20100525
  Serious: Yes (Hospitalization, Other)
  Sender: FDA-Public Use
  Company Number: US-B.I. PHARMACEUTICALS,INC./RIDGEFIELD-2009-BP-13138BP

PATIENT
  Age: 51 Year
  Sex: Male

DRUGS (8)
  1. SPIRIVA [Suspect]
     Indication: CHRONIC OBSTRUCTIVE PULMONARY DISEASE
     Dosage: 18 MCG
     Route: 055
     Dates: start: 20071001
  2. SPIRIVA [Suspect]
     Indication: BRONCHITIS
  3. SPIRIVA [Suspect]
     Indication: EMPHYSEMA
  4. SPIRIVA [Suspect]
     Indication: COCCIDIOIDOMYCOSIS
  5. VICODIN ES [Concomitant]
     Indication: PAIN
  6. PREDNISONE [Concomitant]
     Indication: LUNG DISORDER
     Dosage: 5 MG
  7. MULTI-VITAMIN [Concomitant]
  8. SULFAMETH/TMP [Concomitant]

REACTIONS (3)
  - COCCIDIOIDOMYCOSIS [None]
  - LUNG NEOPLASM MALIGNANT [None]
  - PNEUMONIA [None]
